FAERS Safety Report 13831287 (Version 1)
Quarter: 2017Q3

REPORT INFORMATION
  Report Type: Spontaneous
  Country: US (occurrence: US)
  Receive Date: 20170803
  Receipt Date: 20170803
  Transmission Date: 20171127
  Serious: No
  Sender: FDA-Public Use
  Company Number: US-BAYER-2017-142667

PATIENT
  Age: 86 Year
  Sex: Female
  Weight: 78.96 kg

DRUGS (7)
  1. MILK OF MAGNESIA ORIGINAL [Suspect]
     Active Substance: MAGNESIUM HYDROXIDE
     Indication: GASTROINTESTINAL DISORDER
     Dosage: 30 ML DOSE
     Route: 048
  2. MIRALAX [Suspect]
     Active Substance: POLYETHYLENE GLYCOL 3350
     Indication: BOWEL MOVEMENT IRREGULARITY
  3. MIRALAX [Suspect]
     Active Substance: POLYETHYLENE GLYCOL 3350
     Indication: GASTROINTESTINAL DISORDER
     Dosage: 1 DF, UNK
     Route: 048
  4. TRANZINE [Concomitant]
     Active Substance: CHLORPROMAZINE HYDROCHLORIDE
     Dosage: UNK
  5. GAS-X [Concomitant]
     Active Substance: DIMETHICONE
     Dosage: UNK
  6. POTASSIUM [Concomitant]
     Active Substance: POTASSIUM
     Dosage: UNK
  7. MILK OF MAGNESIA ORIGINAL [Suspect]
     Active Substance: MAGNESIUM HYDROXIDE
     Indication: BOWEL MOVEMENT IRREGULARITY

REACTIONS (3)
  - Diarrhoea [Not Recovered/Not Resolved]
  - Incorrect drug administration duration [Unknown]
  - Product use in unapproved indication [Unknown]
